FAERS Safety Report 10865905 (Version 2)
Quarter: 2015Q1

REPORT INFORMATION
  Report Type: Report from Study
  Country: BG (occurrence: BG)
  Receive Date: 20150224
  Receipt Date: 20150316
  Transmission Date: 20150721
  Serious: Yes (Life-Threatening, Hospitalization)
  Sender: FDA-Public Use
  Company Number: BG-BAYER-2015-025222

PATIENT
  Age: 71 Year
  Sex: Male

DRUGS (1)
  1. NEXAVAR [Suspect]
     Active Substance: SORAFENIB
     Indication: HEPATOCELLULAR CARCINOMA
     Dosage: 400 MG, BID
     Route: 048
     Dates: start: 20141104, end: 20150203

REACTIONS (4)
  - Unevaluable event [None]
  - Cerebrovascular accident [None]
  - Blood pressure increased [None]
  - Neurological examination abnormal [None]

NARRATIVE: CASE EVENT DATE: 20150204
